FAERS Safety Report 4307784-1 (Version None)
Quarter: 2004Q1

REPORT INFORMATION
  Report Type: 
  Country: None (occurrence: None)
  Receive Date: 20040225
  Receipt Date: 20030505
  Transmission Date: 20041129
  Serious: Yes (Other)
  Sender: FDA-Public Use
  Company Number: WAES 0305USA00406

PATIENT
  Age: 54 Year
  Sex: Male

DRUGS (8)
  1. ZOCOR [Suspect]
     Dosage: 20 MG/DAILY/PO
     Route: 048
     Dates: start: 20020801, end: 20030428
  2. BIAXIN [Concomitant]
  3. PLAVIX [Concomitant]
  4. TOPROL-XL [Concomitant]
  5. ANTINEOPLASTIC (UNSPECIFIED) [Concomitant]
  6. FOLIC ACID [Concomitant]
  7. FUROSEMIDE [Concomitant]
  8. POTASSIUM CHLORIDE [Concomitant]

REACTIONS (2)
  - BLOOD CREATINE PHOSPHOKINASE INCREASED [None]
  - MYALGIA [None]
